FAERS Safety Report 23839053 (Version 1)
Quarter: 2024Q2

REPORT INFORMATION
  Report Type: Report from Study
  Country: DE (occurrence: DE)
  Receive Date: 20240509
  Receipt Date: 20240509
  Transmission Date: 20240716
  Serious: Yes (Hospitalization)
  Sender: FDA-Public Use
  Company Number: DE-ROCHE-3214845

PATIENT
  Age: 31 Year
  Sex: Female

DRUGS (3)
  1. TYSABRI [Suspect]
     Active Substance: NATALIZUMAB
     Indication: Relapsing multiple sclerosis
     Dosage: MOST RECENT DOSE RECEIVED ON 14/APR/2022
     Route: 050
     Dates: start: 20210305
  2. PFIZER-BIONTECH COVID-19 VACCINE [Concomitant]
     Active Substance: TOZINAMERAN
     Indication: COVID-19 prophylaxis
     Route: 050
     Dates: start: 20210615, end: 20210615
  3. PFIZER-BIONTECH COVID-19 VACCINE [Concomitant]
     Active Substance: TOZINAMERAN
     Route: 050
     Dates: start: 20210502, end: 20210502

REACTIONS (4)
  - Breast cancer female [Unknown]
  - Fibrocystic breast disease [Unknown]
  - Adnexa uteri pain [Unknown]
  - Mediastinal mass [Unknown]

NARRATIVE: CASE EVENT DATE: 20220512
